FAERS Safety Report 6389248-7 (Version None)
Quarter: 2009Q4

REPORT INFORMATION
  Report Type: 
  Country: None (occurrence: None)
  Receive Date: 20091006
  Receipt Date: 20090925
  Transmission Date: 20100525
  Serious: Yes (Life-Threatening, Hospitalization, Other)
  Sender: FDA-Public Use
  Company Number: PHHO2009FR11899

PATIENT
  Sex: Male
  Weight: 87 kg

DRUGS (6)
  1. RAD 666 RAD++CMAS [Suspect]
     Indication: ACUTE MYELOID LEUKAEMIA
     Dosage: 10 MG, QD
     Route: 048
     Dates: start: 20080310, end: 20080310
  2. RAD 666 RAD++CMAS [Suspect]
     Dosage: 10 MG, QD
     Route: 048
     Dates: start: 20080316, end: 20080316
  3. CERUBIDINE [Suspect]
     Indication: ACUTE MYELOID LEUKAEMIA
     Dosage: 360 MG PER DAY
     Route: 042
     Dates: start: 20080310, end: 20080312
  4. ARACYTINE [Concomitant]
     Indication: ACUTE MYELOID LEUKAEMIA
  5. ZOPHREN [Concomitant]
  6. CHEMOTHERAPEUTICS NOS [Concomitant]

REACTIONS (15)
  - APLASIA [None]
  - APLASTIC ANAEMIA [None]
  - BONE MARROW FAILURE [None]
  - C-REACTIVE PROTEIN INCREASED [None]
  - CENTRAL VENOUS CATHETER REMOVAL [None]
  - ENTEROBACTER INFECTION [None]
  - HAEMOGLOBIN DECREASED [None]
  - HYPOTENSION [None]
  - LEUKOPENIA [None]
  - PLATELET COUNT DECREASED [None]
  - PNEUMONIA [None]
  - PYREXIA [None]
  - SEPSIS [None]
  - THROMBOCYTOPENIA [None]
  - WHITE BLOOD CELL COUNT DECREASED [None]
